FAERS Safety Report 10037581 (Version 1)
Quarter: 2014Q1

REPORT INFORMATION
  Report Type: Spontaneous
  Country: US (occurrence: None)
  Receive Date: 20140324
  Receipt Date: 20140324
  Transmission Date: 20141002
  Serious: Yes (Hospitalization)
  Sender: FDA-Public Use
  Company Number: UTC-045994

PATIENT
  Age: 65 Year
  Sex: Female
  Weight: 73.9 kg

DRUGS (3)
  1. REMODULIN [Suspect]
     Indication: PULMONARY ARTERIAL HYPERTENSION
     Dosage: (0.071 UG/KG, 1 IN 1 MIN)
     Route: 058
     Dates: start: 20080708
  2. WARFARIN (WARFARIN) (UNKNOWN) [Concomitant]
  3. REVATIO (SILDENAFIL) (UNKNOWN) [Concomitant]

REACTIONS (2)
  - International normalised ratio increased [None]
  - Epistaxis [None]
